FAERS Safety Report 9785792 (Version 2)
Quarter: 2014Q1

REPORT INFORMATION
  Report Type: Report from Study
  Country: RU (occurrence: RU)
  Receive Date: 20131227
  Receipt Date: 20140117
  Transmission Date: 20141002
  Serious: Yes (Death)
  Sender: FDA-Public Use
  Company Number: RU-ROCHE-1325754

PATIENT
  Age: 42 Year
  Sex: Male

DRUGS (1)
  1. RITUXIMAB [Suspect]
     Indication: SYSTEMIC SCLEROSIS
     Route: 042

REACTIONS (1)
  - Scleroderma renal crisis [Fatal]
